FAERS Safety Report 18867432 (Version 1)
Quarter: 2021Q1

REPORT INFORMATION
  Report Type: Spontaneous
  Country: US (occurrence: US)
  Receive Date: 20210209
  Receipt Date: 20210209
  Transmission Date: 20210420
  Serious: No
  Sender: FDA-Public Use
  Company Number: None

PATIENT
  Age: 83 Year
  Sex: Male
  Weight: 63 kg

DRUGS (5)
  1. CAPECITABINE. [Concomitant]
     Active Substance: CAPECITABINE
  2. IVERMECTIN. [Concomitant]
     Active Substance: IVERMECTIN
  3. ONDANSETRON [Suspect]
     Active Substance: ONDANSETRON
     Indication: VOMITING
     Dosage: ?          OTHER FREQUENCY:Q8 PRN;?
     Route: 048
     Dates: start: 20210103, end: 20210209
  4. ONDANSETRON [Suspect]
     Active Substance: ONDANSETRON
     Indication: NAUSEA
     Dosage: ?          OTHER FREQUENCY:Q8 PRN;?
     Route: 048
     Dates: start: 20210103, end: 20210209
  5. MVI [Concomitant]
     Active Substance: VITAMINS

REACTIONS (1)
  - Disease progression [None]

NARRATIVE: CASE EVENT DATE: 20210209
